FAERS Safety Report 9804617 (Version 1)
Quarter: 2014Q1

REPORT INFORMATION
  Report Type: Spontaneous
  Country: CA (occurrence: CA)
  Receive Date: 20140108
  Receipt Date: 20140108
  Transmission Date: 20141002
  Serious: Yes (Hospitalization)
  Sender: FDA-Public Use
  Company Number: CA-VERTEX PHARMACEUTICALS INC-2014-000065

PATIENT
  Age: 46 Year
  Sex: Female

DRUGS (7)
  1. INCIVEK [Suspect]
     Indication: CHRONIC HEPATITIS C
     Dosage: 750 MG, TID
     Route: 048
     Dates: start: 20131022, end: 20131204
  2. PEGINTERFERON LAMBDA-1A [Suspect]
     Indication: CHRONIC HEPATITIS C
     Dosage: 180 ?G, QW
     Route: 058
     Dates: start: 20131021, end: 20131209
  3. PEGINTERFERON ALFA-2A [Suspect]
     Indication: CHRONIC HEPATITIS C
     Dosage: 180 ?G, QW
     Route: 058
     Dates: start: 20130121
  4. RIBAVIRIN [Suspect]
     Indication: CHRONIC HEPATITIS C
     Dosage: 1000 MG, QD
     Route: 048
     Dates: start: 20131022, end: 20131209
  5. ATARAX [Concomitant]
     Dosage: UNK
     Dates: start: 20131029
  6. ADVIL [Concomitant]
     Dosage: UNK
     Dates: start: 20131021
  7. TRANEXAMIC ACID [Concomitant]

REACTIONS (1)
  - Rash [Recovered/Resolved]
